FAERS Safety Report 7311661-1 (Version None)
Quarter: 2011Q1

REPORT INFORMATION
  Report Type: 
  Country: None (occurrence: None)
  Receive Date: 20110215
  Receipt Date: 20110215
  Transmission Date: 20110831
  Serious: No
  Sender: FDA-Public Use
  Company Number: None

PATIENT
  Age: 81 Year
  Sex: Female
  Weight: 83.9154 kg

DRUGS (2)
  1. CRESTOR [Suspect]
  2. PREDNISONE [Suspect]

REACTIONS (3)
  - MUSCULAR WEAKNESS [None]
  - CONDITION AGGRAVATED [None]
  - PAIN [None]
